FAERS Safety Report 20487968 (Version 1)
Quarter: 2022Q1

REPORT INFORMATION
  Report Type: Other
  Country: CN (occurrence: None)
  Receive Date: 20220218
  Receipt Date: 20220218
  Transmission Date: 20220423
  Serious: Yes (Hospitalization, Other)
  Sender: FDA-Public Use
  Company Number: CN-Inventia-000171

PATIENT
  Age: 27 Year
  Sex: Female

DRUGS (4)
  1. VENLAFAXINE [Suspect]
     Active Substance: VENLAFAXINE HYDROCHLORIDE
     Indication: Depression
     Dosage: 225MG/D
     Route: 048
     Dates: start: 20210319
  2. LORAZEPAM [Concomitant]
     Active Substance: LORAZEPAM
     Indication: Anxiety
     Dosage: 1MG (ORAL, NIGHTLY)
     Route: 048
  3. ZOLPIDEM TARTRATE [Concomitant]
     Active Substance: ZOLPIDEM TARTRATE
     Indication: Dyssomnia
     Dosage: 10 MG (ORAL, NIGHTLY)
     Route: 048
  4. VENLAFAXINE [Suspect]
     Active Substance: VENLAFAXINE HYDROCHLORIDE
     Indication: Depression
     Dosage: 50 MG/D (ORAL, QD)
     Route: 048
     Dates: start: 20210309

REACTIONS (2)
  - Hepatocellular injury [Recovered/Resolved]
  - Drug intolerance [Unknown]
